FAERS Safety Report 6284013-3 (Version None)
Quarter: 2009Q3

REPORT INFORMATION
  Report Type: 
  Country: None (occurrence: None)
  Receive Date: 20090727
  Receipt Date: 20090716
  Transmission Date: 20100115
  Serious: Yes (Hospitalization)
  Sender: FDA-Public Use
  Company Number: US-BIOGENIDEC-2009BI022200

PATIENT
  Age: 61 Year
  Sex: Female

DRUGS (2)
  1. TYSABRI [Suspect]
     Indication: MULTIPLE SCLEROSIS
     Route: 042
     Dates: start: 20070118, end: 20071130
  2. TYSABRI [Suspect]
     Route: 042
     Dates: start: 20090212

REACTIONS (2)
  - LUNG NEOPLASM MALIGNANT [None]
  - PULMONARY THROMBOSIS [None]
